FAERS Safety Report 8359499-0 (Version None)
Quarter: 2012Q2

REPORT INFORMATION
  Report Type: 
  Country: None (occurrence: None)
  Receive Date: 20120515
  Receipt Date: 20120507
  Transmission Date: 20120825
  Serious: Yes (Other)
  Sender: FDA-Public Use
  Company Number: US-BAYER-2012-039991

PATIENT
  Age: 39 Year
  Sex: Female

DRUGS (3)
  1. VALTREX [Concomitant]
     Dosage: 500 MG, UNK
     Dates: start: 20060616, end: 20090207
  2. AMBIEN [Concomitant]
     Dosage: UNK
     Dates: start: 20081218
  3. YAZ [Suspect]
     Dosage: UNK
     Dates: start: 20071201, end: 20081201

REACTIONS (6)
  - INJURY [None]
  - PAIN [None]
  - PULMONARY EMBOLISM [None]
  - EMOTIONAL DISTRESS [None]
  - GENERAL PHYSICAL HEALTH DETERIORATION [None]
  - ANXIETY [None]
